FAERS Safety Report 25984983 (Version 1)
Quarter: 2025Q4

REPORT INFORMATION
  Report Type: Spontaneous
  Country: EU (occurrence: EU)
  Receive Date: 20251031
  Receipt Date: 20251031
  Transmission Date: 20260118
  Serious: Yes (Other)
  Sender: NOVARTIS
  Company Number: EU-002147023-NVSC2025HR165023

PATIENT
  Sex: Female

DRUGS (2)
  1. KESIMPTA [Suspect]
     Active Substance: OFATUMUMAB
     Indication: Relapsing-remitting multiple sclerosis
     Dosage: UNK
     Route: 065
     Dates: start: 20230306
  2. AIMOVIG [Suspect]
     Active Substance: ERENUMAB-AOOE
     Indication: Migraine prophylaxis
     Dosage: 70 MG, EVERY 28 DAYS
     Route: 058
     Dates: start: 202501

REACTIONS (6)
  - Urinary retention [Unknown]
  - Migraine [Recovering/Resolving]
  - Muscle spasms [Unknown]
  - Dysuria [Unknown]
  - Headache [Unknown]
  - Micturition urgency [Unknown]

NARRATIVE: CASE EVENT DATE: 20230701
